FAERS Safety Report 24434972 (Version 1)
Quarter: 2024Q4

REPORT INFORMATION
  Report Type: Spontaneous
  Country: SK (occurrence: SK)
  Receive Date: 20241014
  Receipt Date: 20241014
  Transmission Date: 20250115
  Serious: Yes (Hospitalization, Other)
  Sender: BOEHRINGER INGELHEIM
  Company Number: SK-BoehringerIngelheim-2024-BI-056656

PATIENT
  Age: 62 Year
  Sex: Male
  Weight: 95 kg

DRUGS (4)
  1. EMPAGLIFLOZIN [Suspect]
     Active Substance: EMPAGLIFLOZIN
     Indication: Type 2 diabetes mellitus
     Route: 048
     Dates: end: 20240929
  2. METFORMIN HYDROCHLORIDE [Suspect]
     Active Substance: METFORMIN HYDROCHLORIDE
     Indication: Type 2 diabetes mellitus
     Dates: end: 20240929
  3. SEMGLEE [Concomitant]
     Indication: Product used for unknown indication
     Dosage: 0-0-0-20
  4. HUMALOG [Concomitant]
     Active Substance: INSULIN LISPRO
     Indication: Product used for unknown indication
     Dosage: 20-18-20-0

REACTIONS (5)
  - Euglycaemic diabetic ketoacidosis [Recovering/Resolving]
  - Blood lactic acid decreased [Recovering/Resolving]
  - Mental disorder [Recovering/Resolving]
  - Hypophagia [Recovering/Resolving]
  - Nausea [Recovering/Resolving]

NARRATIVE: CASE EVENT DATE: 20240929
